FAERS Safety Report 24854246 (Version 2)
Quarter: 2025Q1

REPORT INFORMATION
  Report Type: Spontaneous
  Country: US (occurrence: US)
  Receive Date: 20250117
  Receipt Date: 20250211
  Transmission Date: 20250409
  Serious: No
  Sender: ELI LILLY AND COMPANY
  Company Number: US-ELI_LILLY_AND_COMPANY-US202501010355

PATIENT
  Age: 50 Year
  Sex: Male

DRUGS (1)
  1. OLUMIANT [Suspect]
     Active Substance: BARICITINIB
     Indication: Alopecia
     Route: 065
     Dates: start: 202410

REACTIONS (2)
  - Blood cholesterol increased [Not Recovered/Not Resolved]
  - Drug ineffective [Not Recovered/Not Resolved]
